FAERS Safety Report 13360249 (Version 1)
Quarter: 2017Q1

REPORT INFORMATION
  Report Type: Spontaneous
  Country: US (occurrence: US)
  Receive Date: 20170322
  Receipt Date: 20170322
  Transmission Date: 20170429
  Serious: No
  Sender: FDA-Public Use
  Company Number: US-MIKART, INC.-1064521

PATIENT
  Sex: Female

DRUGS (2)
  1. PATIENT IS TAKING CONCOMITANT MEDS BUT DID NOT IDENTIFY THEM [Concomitant]
  2. DEXTROAMPHETAMINE SULFATE. [Suspect]
     Active Substance: DEXTROAMPHETAMINE SULFATE
     Route: 048

REACTIONS (3)
  - Diplopia [Unknown]
  - Accommodation disorder [Unknown]
  - Vision blurred [Unknown]
